FAERS Safety Report 17632195 (Version 6)
Quarter: 2020Q4

REPORT INFORMATION
  Report Type: Spontaneous
  Country: US (occurrence: US)
  Receive Date: 20200406
  Receipt Date: 20201111
  Transmission Date: 20210113
  Serious: Yes (Hospitalization, Other)
  Sender: FDA-Public Use
  Company Number: US-GLAXOSMITHKLINE-US2020AMR046828

PATIENT

DRUGS (10)
  1. VENTOLIN HFA [Suspect]
     Active Substance: ALBUTEROL SULFATE
     Indication: PRODUCT USED FOR UNKNOWN INDICATION
     Dosage: UNK
  2. ALBUTEROL SULFATE. [Suspect]
     Active Substance: ALBUTEROL SULFATE
     Indication: PRODUCT USED FOR UNKNOWN INDICATION
     Dosage: UNK
     Route: 065
  3. ALBUTEROL SULFATE. [Suspect]
     Active Substance: ALBUTEROL SULFATE
  4. VENTOLIN HFA [Suspect]
     Active Substance: ALBUTEROL SULFATE
  5. VENTOLIN HFA [Suspect]
     Active Substance: ALBUTEROL SULFATE
     Indication: PRODUCT USED FOR UNKNOWN INDICATION
     Dosage: UNK
     Route: 065
  6. ALBUTEROL SULFATE. [Suspect]
     Active Substance: ALBUTEROL SULFATE
  7. VENTOLIN HFA [Suspect]
     Active Substance: ALBUTEROL SULFATE
     Indication: PRODUCT USED FOR UNKNOWN INDICATION
     Dosage: UNK
  8. VENTOLIN HFA [Suspect]
     Active Substance: ALBUTEROL SULFATE
  9. VENTOLIN HFA [Suspect]
     Active Substance: ALBUTEROL SULFATE
  10. ALBUTEROL SULFATE. [Suspect]
     Active Substance: ALBUTEROL SULFATE

REACTIONS (8)
  - Chest tube insertion [Unknown]
  - Wrong technique in device usage process [Unknown]
  - Respiratory tract procedural complication [Unknown]
  - Terminal state [Unknown]
  - Product dose omission issue [Unknown]
  - Product complaint [Unknown]
  - Traumatic lung injury [Unknown]
  - Overdose [Unknown]
